FAERS Safety Report 19146992 (Version 1)
Quarter: 2021Q2

REPORT INFORMATION
  Report Type: Spontaneous
  Country: US (occurrence: US)
  Receive Date: 20210416
  Receipt Date: 20210416
  Transmission Date: 20210717
  Serious: Yes (Other)
  Sender: FDA-Public Use
  Company Number: US-35507-2021-02029

PATIENT
  Age: 57 Year
  Sex: Female

DRUGS (2)
  1. MEGESTROL ACETATE. [Suspect]
     Active Substance: MEGESTROL ACETATE
     Indication: ENDOMETRIAL CANCER STAGE I
     Dosage: UNK
     Route: 065
  2. LEVONORGESTREL. [Suspect]
     Active Substance: LEVONORGESTREL
     Indication: ENDOMETRIAL CANCER STAGE I
     Dosage: UNK
     Route: 015

REACTIONS (1)
  - Treatment failure [Unknown]
